FAERS Safety Report 9113727 (Version 1)
Quarter: 2013Q1

REPORT INFORMATION
  Report Type: Spontaneous
  Country: DE (occurrence: DE)
  Receive Date: 20130208
  Receipt Date: 20130208
  Transmission Date: 20140127
  Serious: Yes (Congenital Anomaly)
  Sender: FDA-Public Use
  Company Number: DE-TEVA-382930GER

PATIENT
  Sex: Male

DRUGS (2)
  1. VENLAFAXIN [Suspect]
     Route: 064
  2. OPIPRAMOL [Concomitant]
     Route: 064

REACTIONS (4)
  - Neonatal respiratory depression [Unknown]
  - Oxygen saturation decreased [Unknown]
  - Polydactyly [Unknown]
  - Apnoea neonatal [Unknown]
